FAERS Safety Report 7096710-0 (Version None)
Quarter: 2010Q4

REPORT INFORMATION
  Report Type: 
  Country: None (occurrence: None)
  Receive Date: 20101111
  Receipt Date: 20091103
  Transmission Date: 20110411
  Serious: No
  Sender: FDA-Public Use
  Company Number: US-KINGPHARMUSA00001-K200901376

PATIENT
  Age: 49 Year
  Sex: Female
  Weight: 79.819 kg

DRUGS (6)
  1. INTAL [Suspect]
     Indication: MULTIPLE CHEMICAL SENSITIVITY
     Dosage: 14.2 G, PRN
     Dates: start: 19940101
  2. SYMBICORT [Concomitant]
     Dosage: UNK
  3. NASACORT [Concomitant]
     Dosage: 1 DF, QD
  4. ZYRTEC [Concomitant]
     Dosage: 10 MG, QD
  5. EPIPEN [Concomitant]
     Dosage: UNK
  6. CONTRACEPTIVES NOS [Concomitant]
     Indication: CONTRACEPTION
     Dosage: UNK

REACTIONS (4)
  - DYSPHONIA [None]
  - DYSPNOEA [None]
  - RESPIRATORY TRACT IRRITATION [None]
  - THROAT IRRITATION [None]
